FAERS Safety Report 14460196 (Version 3)
Quarter: 2020Q1

REPORT INFORMATION
  Report Type: Other
  Country: US (occurrence: US)
  Receive Date: 20180130
  Receipt Date: 20200126
  Transmission Date: 20200409
  Serious: No
  Sender: FDA-Public Use
  Company Number: US-ACORDA-ACO_141418_2017

PATIENT
  Age: 53 Year
  Sex: Female
  Weight: 66.67 kg

DRUGS (14)
  1. BACTRIM [Concomitant]
     Active Substance: SULFAMETHOXAZOLE\TRIMETHOPRIM
     Indication: PRODUCT USED FOR UNKNOWN INDICATION
     Dosage: UNK
     Route: 065
  2. ALL OTHER THERAPEUTIC PRODUCTS [Concomitant]
     Active Substance: UNSPECIFIED INGREDIENT
     Indication: PRODUCT USED FOR UNKNOWN INDICATION
     Dosage: UNK
     Route: 065
  3. AMPYRA [Suspect]
     Active Substance: DALFAMPRIDINE
     Indication: GAIT DISTURBANCE
     Dosage: 10 MG, BID
     Route: 048
     Dates: start: 2010, end: 201604
  4. AMPYRA [Suspect]
     Active Substance: DALFAMPRIDINE
     Indication: MULTIPLE SCLEROSIS
     Dosage: 10 MG, Q 12 HRS
     Route: 048
     Dates: start: 20180118
  5. DALFAMPRIDINE. [Suspect]
     Active Substance: DALFAMPRIDINE
     Indication: MULTIPLE SCLEROSIS
  6. BACLOFEN. [Concomitant]
     Active Substance: BACLOFEN
     Indication: PRODUCT USED FOR UNKNOWN INDICATION
     Dosage: 20 MG, QID
     Route: 065
  7. AMPYRA [Suspect]
     Active Substance: DALFAMPRIDINE
     Dosage: 10 MG, Q 12 HRS
     Route: 048
  8. DALFAMPRIDINE. [Suspect]
     Active Substance: DALFAMPRIDINE
     Indication: GAIT DISTURBANCE
     Dosage: 1 TABLET, Q 12 HRS
     Route: 048
     Dates: start: 201812, end: 20190121
  9. GILENYA [Concomitant]
     Active Substance: FINGOLIMOD HYDROCHLORIDE
     Indication: PRODUCT USED FOR UNKNOWN INDICATION
     Dosage: UNK
     Route: 065
  10. AMPYRA [Suspect]
     Active Substance: DALFAMPRIDINE
     Dosage: 10 MG, Q 12 HRS
     Route: 048
     Dates: end: 2018
  11. AMPYRA [Suspect]
     Active Substance: DALFAMPRIDINE
     Dosage: 10 MILLIGRAM, BID (Q12H)
     Route: 048
  12. AMPYRA [Suspect]
     Active Substance: DALFAMPRIDINE
     Dosage: 10 MG, BID
     Route: 048
  13. NALTREXONE [Concomitant]
     Active Substance: NALTREXONE
     Indication: PRODUCT USED FOR UNKNOWN INDICATION
     Dosage: 4.5 MILLIGRAM
     Route: 065
  14. AMPYRA [Suspect]
     Active Substance: DALFAMPRIDINE
     Dosage: 10 MILLIGRAM, BID (Q12H)
     Route: 048

REACTIONS (26)
  - Fall [Recovered/Resolved]
  - Muscular weakness [Recovered/Resolved]
  - Pain in extremity [Recovered/Resolved]
  - Fall [Unknown]
  - Paraesthesia [Not Recovered/Not Resolved]
  - Dysstasia [Recovered/Resolved]
  - Musculoskeletal stiffness [Recovered/Resolved]
  - Vertigo [Recovered/Resolved]
  - Multiple sclerosis [Not Recovered/Not Resolved]
  - Urinary tract infection [Not Recovered/Not Resolved]
  - Temperature intolerance [Not Recovered/Not Resolved]
  - Product dose omission [Unknown]
  - Fall [Unknown]
  - Fatigue [Recovered/Resolved]
  - Insomnia [Recovered/Resolved]
  - Dizziness [Unknown]
  - Drug hypersensitivity [Recovered/Resolved]
  - Condition aggravated [Not Recovered/Not Resolved]
  - Fall [Recovered/Resolved]
  - Feeling abnormal [Recovering/Resolving]
  - Muscular weakness [Unknown]
  - Asthenia [Recovered/Resolved]
  - Multiple sclerosis relapse [Recovering/Resolving]
  - Bone contusion [Recovered/Resolved]
  - Slow speech [Recovering/Resolving]
  - Gait disturbance [Not Recovered/Not Resolved]

NARRATIVE: CASE EVENT DATE: 20180124
